FAERS Safety Report 8955133 (Version 2)
Quarter: 2012Q4

REPORT INFORMATION
  Report Type: 
  Country: JP (occurrence: JP)
  Receive Date: 20121207
  Receipt Date: 20121214
  Transmission Date: 20130627
  Serious: Yes (Life-Threatening, Hospitalization)
  Sender: FDA-Public Use
  Company Number: JP-ABBOTT-12P-087-1016612-00

PATIENT
  Age: 63 Year
  Sex: Male

DRUGS (3)
  1. LEUPLIN FOR INJECTION KIT 3.75 [Suspect]
     Indication: PROSTATE CANCER
     Route: 058
     Dates: start: 20120828, end: 20121026
  2. CASODEX [Suspect]
     Indication: PROSTATE CANCER
     Route: 048
     Dates: start: 20120817, end: 20121126
  3. FLIVAS OD [Concomitant]
     Indication: PROSTATE CANCER
     Route: 048
     Dates: start: 20120817, end: 20121126

REACTIONS (1)
  - Interstitial lung disease [Not Recovered/Not Resolved]
